FAERS Safety Report 9986673 (Version 2)
Quarter: 2014Q2

REPORT INFORMATION
  Report Type: Spontaneous
  Country: US (occurrence: US)
  Receive Date: 20140307
  Receipt Date: 20140407
  Transmission Date: 20141212
  Serious: Yes (Hospitalization)
  Sender: FDA-Public Use
  Company Number: US-B.I. PHARMACEUTICALS,INC./RIDGEFIELD-2014-BI-09445BP

PATIENT
  Sex: Male
  Weight: 90.72 kg

DRUGS (20)
  1. PRADAXA [Suspect]
     Indication: ATRIAL FIBRILLATION
     Route: 065
     Dates: start: 201103, end: 20110425
  2. BETAPACE [Concomitant]
     Dosage: 80 MG
     Route: 065
     Dates: start: 201104, end: 201106
  3. COUMADIN [Concomitant]
     Dosage: 4 MG
     Route: 065
  4. ASPIRIN [Concomitant]
     Dosage: 81 MG
     Route: 065
  5. CRESTOR [Concomitant]
     Dosage: 20 MG
     Route: 065
  6. FISH OIL [Concomitant]
     Dosage: 1000 MG
     Route: 065
  7. PRINIVIL [Concomitant]
     Dosage: 20 MG
     Route: 065
  8. SLO-NIACIN [Concomitant]
     Dosage: 1000 MG
     Route: 065
  9. ASCORBIC ACID [Concomitant]
     Route: 048
  10. SINEMET [Concomitant]
     Route: 048
  11. VITAMIN B12 [Concomitant]
     Dosage: 500 MCG
     Route: 065
  12. GLUCOSAMINE [Concomitant]
     Route: 065
  13. IMDUR [Concomitant]
     Route: 048
  14. ZESTRIL [Concomitant]
     Dosage: 20 MG
     Route: 065
     Dates: start: 201011, end: 201104
  15. MULTIVITAMIN [Concomitant]
     Route: 065
  16. PRILOSEC [Concomitant]
     Dosage: 28 MG
     Route: 048
     Dates: start: 201004, end: 201105
  17. PAXIL [Concomitant]
     Route: 048
     Dates: start: 201008, end: 201106
  18. VICODIN [Concomitant]
     Route: 065
  19. SIMVASTATIN [Concomitant]
     Route: 065
     Dates: start: 201011, end: 201104
  20. FERROUS SULFATE [Concomitant]
     Route: 065

REACTIONS (1)
  - Gastrointestinal haemorrhage [Unknown]
